FAERS Safety Report 17061293 (Version 3)
Quarter: 2019Q4

REPORT INFORMATION
  Report Type: Report from Study
  Country: US (occurrence: US)
  Receive Date: 20191121
  Receipt Date: 20191209
  Transmission Date: 20200122
  Serious: Yes (Other)
  Sender: FDA-Public Use
  Company Number: US-PFIZER INC-2019367587

PATIENT
  Age: 73 Year
  Sex: Female

DRUGS (1)
  1. IBRANCE [Suspect]
     Active Substance: PALBOCICLIB
     Indication: BREAST CANCER FEMALE
     Dosage: 100 MG, CYCLIC (DAILY FOR 21 DAYS, THEN 7 DAYS OFF)
     Route: 048
     Dates: start: 20190813, end: 20191111

REACTIONS (10)
  - Haemoglobin decreased [Unknown]
  - Musculoskeletal pain [Unknown]
  - Hypertension [Unknown]
  - Leukopenia [Unknown]
  - Anaemia [Unknown]
  - Arthralgia [Unknown]
  - Joint swelling [Unknown]
  - Constipation [Not Recovered/Not Resolved]
  - Condition aggravated [Unknown]
  - Rhinorrhoea [Unknown]

NARRATIVE: CASE EVENT DATE: 2019
